FAERS Safety Report 20506948 (Version 1)
Quarter: 2022Q1

REPORT INFORMATION
  Report Type: Spontaneous
  Country: CN (occurrence: CN)
  Receive Date: 20220223
  Receipt Date: 20220223
  Transmission Date: 20220424
  Serious: Yes (Other)
  Sender: FDA-Public Use
  Company Number: CN-PFIZER INC-202200248232

PATIENT
  Age: 77 Year
  Sex: Male
  Weight: 48 kg

DRUGS (1)
  1. METHYLPREDNISOLONE SODIUM SUCCINATE [Suspect]
     Active Substance: METHYLPREDNISOLONE SODIUM SUCCINATE
     Indication: Pneumonitis
     Dosage: 40 MG, 1X/DAY
     Route: 042
     Dates: start: 20220120, end: 20220123

REACTIONS (1)
  - Dysphoria [Recovering/Resolving]

NARRATIVE: CASE EVENT DATE: 20220123
